FAERS Safety Report 5162263-7 (Version None)
Quarter: 2006Q4

REPORT INFORMATION
  Report Type: 
  Country: None (occurrence: None)
  Receive Date: 20061121
  Receipt Date: 20061102
  Transmission Date: 20070319
  Serious: Yes (Death)
  Sender: FDA-Public Use
  Company Number: 061108-0001005

PATIENT
  Age: 35 Year
  Sex: 0

DRUGS (3)
  1. NEOPROFEN [Suspect]
     Indication: COMPLETED SUICIDE
     Dosage: PO
     Route: 048
  2. BUPROPION HCL [Suspect]
     Indication: COMPLETED SUICIDE
     Dosage: PO
     Route: 048
  3. CHARCOAL, ACTIVATED (CHARCOAL, ACTIVATED) [Suspect]
     Indication: COMPLETED SUICIDE
     Dosage: PO
     Route: 048

REACTIONS (3)
  - ASPIRATION [None]
  - COMPLETED SUICIDE [None]
  - INCORRECT ROUTE OF DRUG ADMINISTRATION [None]
